FAERS Safety Report 9016121 (Version 1)
Quarter: 2013Q1

REPORT INFORMATION
  Report Type: Spontaneous
  Country: US (occurrence: US)
  Receive Date: 20130116
  Receipt Date: 20130116
  Transmission Date: 20140127
  Serious: Yes (Other)
  Sender: FDA-Public Use
  Company Number: US-009507513-1301USA003566

PATIENT
  Age: 15 Year
  Sex: Female

DRUGS (1)
  1. SINGULAIR [Suspect]
     Indication: MULTIPLE ALLERGIES
     Dosage: 1 DAILY
     Route: 048

REACTIONS (7)
  - Screaming [Unknown]
  - Hostility [Unknown]
  - Educational problem [Unknown]
  - Anxiety [Unknown]
  - Anger [Unknown]
  - Aggression [Unknown]
  - Abnormal behaviour [Unknown]
